FAERS Safety Report 25990049 (Version 1)
Quarter: 2025Q4

REPORT INFORMATION
  Report Type: Spontaneous
  Country: US (occurrence: US)
  Receive Date: 20251103
  Receipt Date: 20251103
  Transmission Date: 20260118
  Serious: No
  Sender: MYLAN
  Company Number: US-MYLANLABS-2025M1091986

PATIENT
  Sex: Female

DRUGS (1)
  1. METHYLPHENIDATE [Suspect]
     Active Substance: METHYLPHENIDATE
     Indication: Product used for unknown indication
     Dosage: 1.6 MILLIGRAM, QH (PER HOUR, WHICH DELIVERS 15 MILLIGRAM OVER 9 HOURS)

REACTIONS (2)
  - Anxiety [Unknown]
  - Intrusive thoughts [Unknown]
